FAERS Safety Report 22167896 (Version 1)
Quarter: 2023Q1

REPORT INFORMATION
  Report Type: Spontaneous
  Country: US (occurrence: None)
  Receive Date: 20230331
  Receipt Date: 20230331
  Transmission Date: 20230417
  Serious: Yes (Other)
  Sender: FDA-Public Use
  Company Number: None

PATIENT
  Age: 29 Year
  Sex: Female
  Weight: 49.9 kg

DRUGS (1)
  1. MIRENA [Suspect]
     Active Substance: LEVONORGESTREL

REACTIONS (7)
  - Complication of device insertion [None]
  - Screaming [None]
  - Pain [None]
  - Uterine spasm [None]
  - Anxiety [None]
  - Loss of consciousness [None]
  - Vomiting [None]

NARRATIVE: CASE EVENT DATE: 20210602
